FAERS Safety Report 5583031-8 (Version None)
Quarter: 2008Q1

REPORT INFORMATION
  Report Type: 
  Country: None (occurrence: None)
  Receive Date: 20080107
  Receipt Date: 20080107
  Transmission Date: 20080703
  Serious: Yes (Death, Hospitalization)
  Sender: FDA-Public Use
  Company Number: A0695424A

PATIENT
  Age: 71 Year
  Sex: Female

DRUGS (9)
  1. COREG [Suspect]
     Route: 048
     Dates: start: 20030101
  2. SYNTHROID [Concomitant]
  3. LEXAPRO [Concomitant]
  4. LISINOPRIL [Concomitant]
  5. NORVASC [Concomitant]
  6. LORAZEPAM [Concomitant]
  7. COUMADIN [Concomitant]
  8. ALLEGRA [Concomitant]
  9. AMIODARONE HCL [Concomitant]

REACTIONS (8)
  - AORTIC VALVE DISEASE [None]
  - CARDIAC FAILURE CHRONIC [None]
  - CEREBRAL HAEMORRHAGE [None]
  - CLOSTRIDIAL INFECTION [None]
  - DEATH [None]
  - FALL [None]
  - PNEUMONIA [None]
  - VENTRICULAR TACHYCARDIA [None]
